FAERS Safety Report 18546970 (Version 1)
Quarter: 2020Q4

REPORT INFORMATION
  Report Type: Spontaneous
  Country: US (occurrence: US)
  Receive Date: 20201125
  Receipt Date: 20201125
  Transmission Date: 20210114
  Serious: Yes (Other)
  Sender: FDA-Public Use
  Company Number: US-NALPROPION PHARMACEUTICALS INC.-2020-011696

PATIENT
  Age: 38 Year
  Sex: Female

DRUGS (1)
  1. CONTRAVE [Suspect]
     Active Substance: BUPROPION HYDROCHLORIDE\NALTREXONE HYDROCHLORIDE
     Indication: WEIGHT CONTROL
     Dosage: 8/90 MILLIGRAM, 1 TABLET IN THE AM
     Route: 048
     Dates: start: 20201112, end: 20201114

REACTIONS (6)
  - Vision blurred [Recovered/Resolved]
  - Epileptic aura [Recovered/Resolved]
  - Loss of consciousness [Recovered/Resolved]
  - Contraindicated product prescribed [Unknown]
  - Seizure [Recovered/Resolved]
  - Contraindicated product administered [Unknown]

NARRATIVE: CASE EVENT DATE: 20201112
